FAERS Safety Report 5041351-X (Version None)
Quarter: 2006Q2

REPORT INFORMATION
  Report Type: 
  Country: None (occurrence: None)
  Receive Date: 20060628
  Receipt Date: 20060616
  Transmission Date: 20061013
  Serious: Yes (Hospitalization)
  Sender: FDA-Public Use
  Company Number: EM2006-0337

PATIENT
  Age: 43 Year
  Sex: Male
  Weight: 70 kg

DRUGS (6)
  1. MACROLIN [Suspect]
     Indication: HIV INFECTION
     Dosage: 6 MIU, BID, SUBCUTAN.
     Route: 058
     Dates: start: 20060522, end: 20060523
  2. TRIZIVIR [Concomitant]
  3. OMEPRAZOLE [Concomitant]
  4. ZYRTEC [Concomitant]
  5. ACETAMINOPHEN [Concomitant]
  6. ACETAMINOPHEN [Concomitant]

REACTIONS (11)
  - CARDIOMEGALY [None]
  - CORONARY ARTERY OCCLUSION [None]
  - DILATATION VENTRICULAR [None]
  - EJECTION FRACTION DECREASED [None]
  - ENDOCARDITIS [None]
  - MITRAL VALVE INCOMPETENCE [None]
  - MITRAL VALVE PROLAPSE [None]
  - MYOCARDIAL INFARCTION [None]
  - PLEURAL EFFUSION [None]
  - PULMONARY OEDEMA [None]
  - VENTRICULAR HYPOKINESIA [None]
